FAERS Safety Report 9259336 (Version 2)
Quarter: 2013Q2

REPORT INFORMATION
  Report Type: Spontaneous
  Country: RU (occurrence: RU)
  Receive Date: 20130427
  Receipt Date: 20130603
  Transmission Date: 20140414
  Serious: Yes (Other)
  Sender: FDA-Public Use
  Company Number: RU-ROCHE-1215420

PATIENT
  Age: 44 Year
  Sex: Female
  Weight: 68 kg

DRUGS (13)
  1. ACTEMRA [Suspect]
     Indication: RHEUMATOID ARTHRITIS
     Dosage: STARTING DOSE 8 MG/KG, MONTHLY DOSE:600 MG
     Route: 042
     Dates: start: 20120427
  2. ACTEMRA [Suspect]
     Route: 042
     Dates: start: 20120525
  3. ACTEMRA [Suspect]
     Route: 042
     Dates: start: 20120629
  4. ACTEMRA [Suspect]
     Route: 042
     Dates: start: 20120808
  5. ACTEMRA [Suspect]
     Route: 042
     Dates: start: 201210
  6. MABTHERA [Suspect]
     Indication: RHEUMATOID ARTHRITIS
     Route: 065
     Dates: start: 201105, end: 201111
  7. CYCLOSPORIN [Concomitant]
     Indication: RHEUMATOID ARTHRITIS
     Dosage: PER DAY
     Route: 065
     Dates: start: 201012
  8. METHOTREXATE [Concomitant]
     Indication: RHEUMATOID ARTHRITIS
     Dosage: PER WEEK
     Route: 065
     Dates: start: 2000
  9. METHOTREXATE [Concomitant]
     Dosage: PER WEEK
     Route: 030
     Dates: start: 201012, end: 201210
  10. SOLU-MEDROL [Concomitant]
     Dosage: 1, 03, 3 TIME
     Route: 065
     Dates: start: 200711
  11. ARAVA [Concomitant]
     Dosage: DAILY
     Route: 065
     Dates: start: 200711
  12. ARAVA [Concomitant]
     Dosage: DAILY
     Route: 065
     Dates: start: 200905
  13. DIPROSPAN [Concomitant]
     Route: 030
     Dates: start: 200404

REACTIONS (8)
  - Leukopenia [Not Recovered/Not Resolved]
  - Red blood cell sedimentation rate increased [Recovered/Resolved]
  - Drug ineffective [Unknown]
  - Respiratory tract infection viral [Recovered/Resolved]
  - Dysbacteriosis [Not Recovered/Not Resolved]
  - Stomatitis [Recovered/Resolved]
  - Arthralgia [Recovered/Resolved]
  - C-reactive protein increased [Recovered/Resolved]
